FAERS Safety Report 11653341 (Version 3)
Quarter: 2015Q4

REPORT INFORMATION
  Report Type: Spontaneous
  Country: US (occurrence: US)
  Receive Date: 20151022
  Receipt Date: 20151027
  Transmission Date: 20160304
  Serious: Yes (Hospitalization)
  Sender: FDA-Public Use
  Company Number: PHHY2015US125147

PATIENT
  Age: 36 Year
  Sex: Male

DRUGS (1)
  1. LAMOTRIGINE. [Suspect]
     Active Substance: LAMOTRIGINE
     Indication: SUICIDE ATTEMPT
     Dosage: 13.5 G  (90 TABLETS OF 150 MG)
     Route: 065

REACTIONS (7)
  - Suicide attempt [Unknown]
  - Status epilepticus [Unknown]
  - Overdose [Unknown]
  - Conduction disorder [Recovered/Resolved]
  - Critical illness myopathy [Unknown]
  - Mental status changes [Not Recovered/Not Resolved]
  - Electrocardiogram QRS complex prolonged [Recovered/Resolved]
